FAERS Safety Report 5773524-2 (Version None)
Quarter: 2008Q2

REPORT INFORMATION
  Report Type: 
  Country: None (occurrence: None)
  Receive Date: 20080616
  Receipt Date: 20080605
  Transmission Date: 20081010
  Serious: Yes (Other)
  Sender: FDA-Public Use
  Company Number: US-ROCHE-568830

PATIENT
  Age: 64 Year
  Sex: Female

DRUGS (3)
  1. PEGASYS [Suspect]
     Indication: HEPATITIS C
     Dosage: FORMULATION: INJECTION
     Route: 065
  2. RIBAVIRIN [Suspect]
     Indication: HEPATITIS C
     Route: 065
  3. ZOLOFT [Concomitant]
     Indication: DEPRESSION

REACTIONS (9)
  - BLOOD PRESSURE INCREASED [None]
  - CANDIDIASIS [None]
  - COAGULOPATHY [None]
  - COUGH [None]
  - FATIGUE [None]
  - FULL BLOOD COUNT DECREASED [None]
  - SKIN ULCER [None]
  - VISION BLURRED [None]
  - WHITE BLOOD CELL COUNT DECREASED [None]
